FAERS Safety Report 4428698-2 (Version None)
Quarter: 2004Q3

REPORT INFORMATION
  Report Type: 
  Country: None (occurrence: None)
  Receive Date: 20040818
  Receipt Date: 20031208
  Transmission Date: 20050211
  Serious: Yes (Hospitalization)
  Sender: FDA-Public Use
  Company Number: US-BRISTOL-MYERS SQUIBB COMPANY-12451803

PATIENT
  Age: 76 Year
  Sex: Female
  Weight: 72 kg

DRUGS (13)
  1. TEQUIN [Suspect]
     Indication: URINARY TRACT INFECTION
     Route: 040
     Dates: start: 20030719, end: 20030719
  2. COLACE [Concomitant]
  3. COZAAR [Concomitant]
  4. MESTINON [Concomitant]
  5. LASIX [Concomitant]
  6. DIABETA [Concomitant]
  7. DITROPAN [Concomitant]
  8. CARDIZEM [Concomitant]
  9. ATROVENT [Concomitant]
  10. FLOVENT [Concomitant]
  11. NYSTATIN [Concomitant]
  12. ACTOS [Concomitant]
  13. LANOXIN [Concomitant]

REACTIONS (2)
  - HYPOGLYCAEMIA [None]
  - INTERNATIONAL NORMALISED RATIO INCREASED [None]
